FAERS Safety Report 8428246-6 (Version None)
Quarter: 2012Q2

REPORT INFORMATION
  Report Type: 
  Country: None (occurrence: None)
  Receive Date: 20120611
  Receipt Date: 20110913
  Transmission Date: 20120825
  Serious: No
  Sender: FDA-Public Use
  Company Number: US-ASTRAZENECA-2010SE50911

PATIENT
  Sex: Male

DRUGS (24)
  1. TRAMADOL HCL [Concomitant]
     Indication: PAIN
  2. ACEON [Concomitant]
  3. LEVOTHYROXINE SODIUM [Concomitant]
  4. PULMICORT FLEXHALER [Suspect]
     Route: 055
  5. TOPROL-XL [Concomitant]
  6. LORATADINE [Concomitant]
  7. DIGOXIN [Concomitant]
  8. FUROSEMIDE [Concomitant]
     Indication: FLUID RETENTION
  9. FUROSEMIDE [Concomitant]
     Indication: BLOOD PRESSURE ABNORMAL
  10. COMBIVENT [Concomitant]
  11. SPIRONOLACTONE [Concomitant]
  12. NITROGLYCERIN [Concomitant]
  13. NASACORT [Concomitant]
  14. NEXIUM [Concomitant]
  15. XANAX [Concomitant]
  16. MEVACOR [Concomitant]
  17. FERROUS SULFATE TAB [Concomitant]
  18. ASPIRIN [Concomitant]
  19. CENTRUM [Concomitant]
  20. VITAMIN E [Concomitant]
  21. AMIODARONE HCL [Concomitant]
  22. SINGULAIR [Concomitant]
  23. ACETAMINOPHEN [Concomitant]
  24. NIACIN [Concomitant]

REACTIONS (1)
  - PEPTIC ULCER REACTIVATED [None]
